FAERS Safety Report 17746558 (Version 1)
Quarter: 2020Q2

REPORT INFORMATION
  Report Type: Spontaneous
  Country: US (occurrence: US)
  Receive Date: 20200505
  Receipt Date: 20200505
  Transmission Date: 20200714
  Serious: No
  Sender: FDA-Public Use
  Company Number: US-CADILA HEALTHCARE LIMITED-US-ZYDUS-034661

PATIENT
  Sex: Female

DRUGS (1)
  1. PAROXETINE. [Suspect]
     Active Substance: PAROXETINE
     Indication: HOT FLUSH
     Dosage: 5 MILLIGRAM,FREQUENCY :TWICE DAILY
     Route: 048
     Dates: start: 20190306

REACTIONS (3)
  - Product physical issue [Recovered/Resolved]
  - Product administration error [Recovered/Resolved]
  - Wrong technique in product usage process [Recovered/Resolved]

NARRATIVE: CASE EVENT DATE: 20190306
